FAERS Safety Report 20617729 (Version 2)
Quarter: 2022Q2

REPORT INFORMATION
  Report Type: Spontaneous
  Country: US (occurrence: US)
  Receive Date: 20220321
  Receipt Date: 20220405
  Transmission Date: 20220721
  Serious: Yes (Hospitalization, Disabling, Congenital Anomaly, Other)
  Sender: FDA-Public Use
  Company Number: US-TEVA-2022-US-2017581

PATIENT
  Age: 0 Year
  Sex: Male
  Weight: 3.1 kg

DRUGS (7)
  1. OXYCODONE [Suspect]
     Active Substance: OXYCODONE
     Indication: Back pain
     Route: 064
  2. VICODIN [Suspect]
     Active Substance: ACETAMINOPHEN\HYDROCODONE BITARTRATE
     Indication: Back pain
     Dosage: DAILY
     Route: 064
     Dates: start: 2008, end: 2010
  3. PERCOCET [Suspect]
     Active Substance: ACETAMINOPHEN\OXYCODONE HYDROCHLORIDE
     Indication: Back pain
     Dosage: DAILY
     Route: 064
     Dates: start: 2008, end: 2010
  4. OXYCONTIN [Suspect]
     Active Substance: OXYCODONE HYDROCHLORIDE
     Indication: Back pain
     Dosage: DAILY
     Route: 064
     Dates: start: 2008, end: 2010
  5. TALWIN [Suspect]
     Active Substance: PENTAZOCINE LACTATE
     Indication: Back pain
     Dosage: POSSIBLY IN -2009
     Route: 064
  6. METHADONE [Suspect]
     Active Substance: METHADONE HYDROCHLORIDE
     Indication: Drug dependence
     Route: 064
     Dates: start: 2009, end: 2010
  7. HEROIN [Suspect]
     Active Substance: DIAMORPHINE
     Indication: Back pain
     Dosage: FIRST 5 MONTHS OF PREGNANCY
     Route: 064

REACTIONS (26)
  - Drug withdrawal syndrome neonatal [Unknown]
  - Arnold-Chiari malformation [Unknown]
  - Autism spectrum disorder [Unknown]
  - Microcephaly [Unknown]
  - Mental impairment [Unknown]
  - Hypoglycaemia [Recovered/Resolved]
  - Congenital scoliosis [Unknown]
  - Respiratory distress [Unknown]
  - Developmental delay [Recovered/Resolved]
  - Premature baby [Unknown]
  - Tonsillar hypertrophy [Recovered/Resolved]
  - Tonsillitis streptococcal [Recovered/Resolved]
  - Tympanic membrane perforation [Recovered/Resolved]
  - Motor developmental delay [Unknown]
  - Speech disorder developmental [Unknown]
  - Strabismus [Unknown]
  - Small for dates baby [Unknown]
  - Sleep disorder [Unknown]
  - Symbolic dysfunction [Unknown]
  - Amblyopia [Unknown]
  - Behaviour disorder [Unknown]
  - Foetal exposure during pregnancy [Unknown]
  - Constipation [Unknown]
  - Pica [Unknown]
  - Hypotonia [Unknown]
  - Lactose intolerance [Unknown]

NARRATIVE: CASE EVENT DATE: 20100201
